FAERS Safety Report 7997392-3 (Version None)
Quarter: 2011Q4

REPORT INFORMATION
  Report Type: 
  Country: None (occurrence: None)
  Receive Date: 20111221
  Receipt Date: 20111219
  Transmission Date: 20120403
  Serious: Yes (Death, Hospitalization, Other)
  Sender: FDA-Public Use
  Company Number: JP-PFIZER INC-2011308004

PATIENT
  Age: 60 Year
  Sex: Female

DRUGS (12)
  1. FAMOTIDINE [Concomitant]
  2. DEXTROMETHORPHAN HYDROBROMIDE [Concomitant]
  3. LYRICA [Suspect]
     Indication: POST HERPETIC NEURALGIA
     Dosage: 75 MG, 2X/DAY
     Route: 048
     Dates: start: 20110517, end: 20110613
  4. RISEDRONATE SODIUM [Concomitant]
  5. LYRICA [Suspect]
     Dosage: 75 MG, 3X/DAY
     Route: 048
     Dates: start: 20111121
  6. PREDNISOLONE [Concomitant]
     Indication: INTERSTITIAL LUNG DISEASE
  7. DEPAS [Concomitant]
  8. CODEINE PHOSPHATE [Concomitant]
  9. NEUROTROPIN [Concomitant]
  10. MAGNESIUM OXIDE [Concomitant]
  11. CLARITHROMYCIN [Concomitant]
  12. LYRICA [Suspect]
     Dosage: 75 MG, 4X/DAY
     Route: 048
     Dates: start: 20110614, end: 20111120

REACTIONS (6)
  - DECREASED APPETITE [None]
  - PNEUMONIA [None]
  - CARDIAC FAILURE [None]
  - OEDEMA PERIPHERAL [None]
  - DYSPNOEA [None]
  - RESPIRATORY ARREST [None]
